FAERS Safety Report 6244942-3 (Version None)
Quarter: 2009Q2

REPORT INFORMATION
  Report Type: 
  Country: None (occurrence: None)
  Receive Date: 20090619
  Receipt Date: 20090302
  Transmission Date: 20091009
  Serious: No
  Sender: FDA-Public Use
  Company Number: ALL1-2009-00552

PATIENT
  Age: 8 Year
  Sex: Male
  Weight: 27.2 kg

DRUGS (3)
  1. VYVANSE [Suspect]
     Indication: ATTENTION DEFICIT/HYPERACTIVITY DISORDER
     Dosage: 20 MG, 1X/DAY:QD, ORAL
     Route: 048
     Dates: start: 20090301
  2. RHINOCORT [Concomitant]
  3. FISH OIL (FISH OIL) [Concomitant]

REACTIONS (3)
  - EMOTIONAL DISTRESS [None]
  - FLAT AFFECT [None]
  - SOCIAL AVOIDANT BEHAVIOUR [None]
